FAERS Safety Report 14205412 (Version 1)
Quarter: 2017Q4

REPORT INFORMATION
  Report Type: Spontaneous
  Country: US (occurrence: None)
  Receive Date: 20171118
  Receipt Date: 20171118
  Transmission Date: 20180321
  Serious: No
  Sender: FDA-Public Use
  Company Number: None

PATIENT
  Age: 79 Year
  Sex: Male

DRUGS (1)
  1. ESBRIET [Suspect]
     Active Substance: PIRFENIDONE
     Dosage: 3 TID THREE TIMES DAILY
     Route: 048
     Dates: start: 20171010

REACTIONS (3)
  - Palpitations [None]
  - Drug dose omission [None]
  - Dyspnoea [None]

NARRATIVE: CASE EVENT DATE: 20171113
